FAERS Safety Report 7247337-9 (Version None)
Quarter: 2011Q1

REPORT INFORMATION
  Report Type: 
  Country: None (occurrence: None)
  Receive Date: 20110127
  Receipt Date: 20110120
  Transmission Date: 20110831
  Serious: Yes (Hospitalization)
  Sender: FDA-Public Use
  Company Number: D0070060A

PATIENT
  Age: 76 Year
  Sex: Male
  Weight: 120 kg

DRUGS (26)
  1. BISOPROLOL [Concomitant]
     Dosage: 2.5MG TWICE PER DAY
     Route: 048
     Dates: end: 20091204
  2. TAMSULOSIN HCL [Concomitant]
     Dosage: .4MG PER DAY
     Route: 048
  3. ALLOPURINOL [Concomitant]
     Dosage: 150MG PER DAY
     Route: 048
  4. SPIRIVA [Concomitant]
     Indication: CHRONIC OBSTRUCTIVE PULMONARY DISEASE
     Dosage: 18UG PER DAY
     Route: 055
  5. EMBOLEX [Concomitant]
     Dosage: 3000IU PER DAY
     Route: 058
     Dates: start: 20091124, end: 20091125
  6. OMEPRAZOLE [Suspect]
     Dosage: 40MG PER DAY
     Route: 048
     Dates: start: 20091126
  7. BLOPRESS [Concomitant]
     Dosage: 28.5MG TWICE PER DAY
     Route: 048
     Dates: end: 20091204
  8. OXYGESIC [Concomitant]
     Indication: PAIN
     Dosage: 10MG TWICE PER DAY
     Route: 048
     Dates: start: 20091126
  9. FALITHROM [Concomitant]
     Route: 048
     Dates: start: 20050101, end: 20091117
  10. OXIS TURBOHALER [Concomitant]
     Indication: CHRONIC OBSTRUCTIVE PULMONARY DISEASE
     Dosage: 6UG PER DAY
     Route: 055
  11. VEROSPIRON [Concomitant]
     Dosage: 12.5MG PER DAY
     Route: 048
  12. OXYGESIC [Concomitant]
     Route: 048
     Dates: start: 20091201, end: 20091201
  13. BERLOSIN [Concomitant]
     Indication: PAIN
     Dosage: 500MG THREE TIMES PER DAY
     Route: 048
     Dates: start: 20091126, end: 20091207
  14. SIMVASTATIN [Concomitant]
     Dosage: 20MG PER DAY
     Route: 048
  15. PERFALGAN [Concomitant]
     Route: 042
     Dates: start: 20091201, end: 20091202
  16. EMBOLEX [Concomitant]
     Dosage: 8000IU PER DAY
     Route: 058
     Dates: start: 20091126, end: 20091217
  17. PREDNISOLONE [Concomitant]
     Route: 065
     Dates: start: 20030101, end: 20030101
  18. CEFUROXIME SODIUM [Suspect]
     Indication: INFECTION PROPHYLAXIS
     Dosage: 1500MG PER DAY
     Route: 042
     Dates: start: 20091125, end: 20091125
  19. CLEXANE [Concomitant]
     Dosage: 80MG PER DAY
     Route: 058
     Dates: start: 20091118, end: 20091122
  20. ZOFRAN [Concomitant]
     Indication: NAUSEA
     Route: 048
     Dates: start: 20091127, end: 20091127
  21. PERFALGAN [Concomitant]
     Indication: PAIN
     Route: 042
     Dates: start: 20091125, end: 20091125
  22. VOLTAREN [Concomitant]
     Indication: PAIN
     Dosage: 50MG TWICE PER DAY
     Route: 048
     Dates: start: 20091126, end: 20091130
  23. CEFUROXIM AXETIL [Suspect]
     Indication: INFECTION PROPHYLAXIS
     Dosage: 500MG THREE TIMES PER DAY
     Route: 048
     Dates: start: 20091126, end: 20091202
  24. SYMBICORT [Concomitant]
     Indication: CHRONIC OBSTRUCTIVE PULMONARY DISEASE
     Dosage: 84.5UG TWICE PER DAY
     Route: 055
  25. TORSEMIDE [Concomitant]
     Dosage: 5MG PER DAY
     Route: 048
  26. KONAKION [Concomitant]
     Indication: VITAMIN K DEFICIENCY
     Route: 042
     Dates: start: 20091123, end: 20091124

REACTIONS (6)
  - PYREXIA [None]
  - DRUG INTERACTION [None]
  - C-REACTIVE PROTEIN INCREASED [None]
  - DIARRHOEA [None]
  - LEUKOCYTOSIS [None]
  - CLOSTRIDIUM DIFFICILE COLITIS [None]
